FAERS Safety Report 5875149-7 (Version None)
Quarter: 2008Q3

REPORT INFORMATION
  Report Type: 
  Country: None (occurrence: None)
  Receive Date: 20080904
  Receipt Date: 20080820
  Transmission Date: 20090109
  Serious: Yes (Other)
  Sender: FDA-Public Use
  Company Number: 1419181-2008-0014

PATIENT
  Sex: Female
  Weight: 60.782 kg

DRUGS (1)
  1. 2% CHLORHEXIDINE GLUCONATE CLOTH (9707) SAGE PRODUCTS INC. [Suspect]
     Indication: PROPHYLAXIS
     Dosage: 3000MG DAILY TOPICAL
     Route: 061
     Dates: start: 20080607, end: 20080806

REACTIONS (8)
  - ABDOMINAL ABSCESS [None]
  - ASPIRATION [None]
  - BACTERAEMIA [None]
  - BURKHOLDERIA CEPACIA INFECTION [None]
  - DISEASE RECURRENCE [None]
  - KLEBSIELLA INFECTION [None]
  - LUNG INFECTION [None]
  - RESPIRATORY DISTRESS [None]
